FAERS Safety Report 20023592 (Version 1)
Quarter: 2021Q4

REPORT INFORMATION
  Report Type: Spontaneous
  Country: IN (occurrence: IN)
  Receive Date: 20211102
  Receipt Date: 20211102
  Transmission Date: 20220303
  Serious: Yes (Hospitalization, Other)
  Sender: FDA-Public Use
  Company Number: IN-SA-2021SA349378

PATIENT
  Age: 32 Year
  Sex: Female

DRUGS (3)
  1. PREDNISOLONE [Suspect]
     Active Substance: PREDNISOLONE
     Indication: Pemphigus
     Dosage: 40 MG
     Route: 048
  2. CYCLOPHOSPHAMIDE [Suspect]
     Active Substance: CYCLOPHOSPHAMIDE
     Indication: Pemphigus
     Dosage: 200 MG SYSTEMIC
  3. TRIAMCINOLONE ACETONIDE [Suspect]
     Active Substance: TRIAMCINOLONE ACETONIDE
     Indication: Optic neuritis
     Dosage: 40 MG, 1X INJECTION

REACTIONS (10)
  - Retinitis viral [Recovered/Resolved]
  - Cytomegalovirus chorioretinitis [Recovered/Resolved]
  - Visual impairment [Recovered/Resolved]
  - Pupillary reflex impaired [Recovered/Resolved]
  - Papilloedema [Recovered/Resolved]
  - Retinal haemorrhage [Recovered/Resolved]
  - Herpes virus infection [Recovered/Resolved]
  - Retinal occlusive vasculitis [Recovered/Resolved]
  - Eye inflammation [Recovered/Resolved]
  - Optic atrophy [Unknown]
